FAERS Safety Report 12571490 (Version 1)
Quarter: 2016Q3

REPORT INFORMATION
  Report Type: Spontaneous
  Country: US (occurrence: US)
  Receive Date: 20160719
  Receipt Date: 20160719
  Transmission Date: 20161109
  Serious: No
  Sender: FDA-Public Use
  Company Number: US-TRIS PHARMA, INC.-1055263

PATIENT
  Age: 48 Year
  Sex: Male
  Weight: 90.91 kg

DRUGS (1)
  1. DEXTROMETHORPHAN POLISTIREX ER OS 6 MG/ML [Suspect]
     Active Substance: DEXTROMETHORPHAN HYDROBROMIDE
     Indication: COUGH
     Dates: start: 20151220, end: 20151221

REACTIONS (4)
  - Vision blurred [None]
  - Dizziness [None]
  - Drug ineffective [None]
  - Feeling abnormal [None]
